FAERS Safety Report 9293099 (Version 1)
Quarter: 2013Q2

REPORT INFORMATION
  Report Type: Spontaneous
  Country: US (occurrence: None)
  Receive Date: 20130514
  Receipt Date: 20130514
  Transmission Date: 20140414
  Serious: Yes (Death, Hospitalization, Disabling)
  Sender: FDA-Public Use
  Company Number: US-2013-1298

PATIENT
  Age: 68 Year
  Sex: Female

DRUGS (5)
  1. NAVELBINE (VINORELBINE TARTRATE) INFUSION [Suspect]
     Indication: BREAST CANCER METASTATIC
  2. ARIXTRA (FONDAPARINUX SODIUM) [Suspect]
     Indication: PULMONARY EMBOLISM
     Route: 058
     Dates: start: 20120523, end: 20130108
  3. HERCEPTIN (TRASTUZUMAB) [Suspect]
     Indication: BREAST CANCER METASTATIC
  4. DURATUSS (GUAIFENESIN, PSEUDOEPHEDRINE HYDROCHLORIDE) [Concomitant]
  5. CALCIUM (CALCIUM) [Concomitant]

REACTIONS (5)
  - Neutropenia [None]
  - Breast cancer metastatic [None]
  - Malignant neoplasm progression [None]
  - Asthenia [None]
  - Abasia [None]
